FAERS Safety Report 13679447 (Version 1)
Quarter: 2017Q2

REPORT INFORMATION
  Report Type: Spontaneous
  Country: FR (occurrence: FR)
  Receive Date: 20170622
  Receipt Date: 20170622
  Transmission Date: 20170830
  Serious: Yes (Other)
  Sender: FDA-Public Use
  Company Number: FR-IGSA-SR10004959

PATIENT
  Sex: Female

DRUGS (1)
  1. FLEBOGAMMA DIF [Suspect]
     Active Substance: HUMAN IMMUNOGLOBULIN G
     Indication: PRODUCT USED FOR UNKNOWN INDICATION
     Dosage: 20 G, UNK
     Route: 042

REACTIONS (5)
  - Chills [Unknown]
  - Unresponsive to stimuli [Unknown]
  - Pain in extremity [Unknown]
  - Tremor [Unknown]
  - Epilepsy [Unknown]
